FAERS Safety Report 17151198 (Version 2)
Quarter: 2019Q4

REPORT INFORMATION
  Report Type: Spontaneous
  Country: JP (occurrence: JP)
  Receive Date: 20191213
  Receipt Date: 20191231
  Transmission Date: 20200122
  Serious: Yes (Death, Other)
  Sender: FDA-Public Use
  Company Number: NVSC2019JP067560

PATIENT
  Age: 44 Year
  Sex: Female

DRUGS (14)
  1. IRINOTECAN [Suspect]
     Active Substance: IRINOTECAN
     Indication: RECTAL CANCER
     Dosage: UNK
     Route: 065
  2. 5 FLUOROURACIL [Suspect]
     Active Substance: FLUOROURACIL
     Indication: RECTAL CANCER
     Dosage: UNK
     Route: 065
  3. BEVACIZUMAB. [Suspect]
     Active Substance: BEVACIZUMAB
     Indication: RECTAL CANCER
     Dosage: UNK
     Route: 065
  4. REGORAFENIB. [Suspect]
     Active Substance: REGORAFENIB
     Indication: METASTASES TO LUNG
  5. RAMUCIRUMAB [Suspect]
     Active Substance: RAMUCIRUMAB
     Indication: METASTASES TO LUNG
  6. BEVACIZUMAB. [Suspect]
     Active Substance: BEVACIZUMAB
     Indication: METASTASES TO LUNG
  7. OXALIPLATIN. [Suspect]
     Active Substance: OXALIPLATIN
     Indication: RECTAL CANCER
     Dosage: UNK
     Route: 065
  8. REGORAFENIB. [Suspect]
     Active Substance: REGORAFENIB
     Indication: RECTAL CANCER
     Dosage: UNK
     Route: 065
  9. CALCIUM FOLINATE [Suspect]
     Active Substance: LEUCOVORIN CALCIUM
     Indication: RECTAL CANCER
     Dosage: UNK
     Route: 065
  10. 5 FLUOROURACIL [Suspect]
     Active Substance: FLUOROURACIL
     Indication: METASTASES TO LUNG
  11. IRINOTECAN [Suspect]
     Active Substance: IRINOTECAN
     Indication: METASTASES TO LUNG
  12. CALCIUM FOLINATE [Suspect]
     Active Substance: LEUCOVORIN CALCIUM
     Indication: METASTASES TO LUNG
  13. OXALIPLATIN. [Suspect]
     Active Substance: OXALIPLATIN
     Indication: METASTASES TO LUNG
  14. RAMUCIRUMAB [Suspect]
     Active Substance: RAMUCIRUMAB
     Indication: RECTAL CANCER
     Dosage: UNK
     Route: 065

REACTIONS (4)
  - Malignant neoplasm progression [Fatal]
  - Metastases to lung [Fatal]
  - Haematotoxicity [Unknown]
  - Rectal cancer [Fatal]
